FAERS Safety Report 11933824 (Version 5)
Quarter: 2016Q1

REPORT INFORMATION
  Report Type: Spontaneous
  Country: IN (occurrence: IN)
  Receive Date: 20160121
  Receipt Date: 20160226
  Transmission Date: 20160526
  Serious: Yes (Hospitalization, Other)
  Sender: FDA-Public Use
  Company Number: IN-ROCHE-1695081

PATIENT
  Age: 64 Year
  Sex: Male

DRUGS (1)
  1. AVASTIN [Suspect]
     Active Substance: BEVACIZUMAB
     Indication: RETINITIS
     Dosage: 100 MG/4 ML?LAST DOSE PRIOR TO SAE: 12/JAN/2016
     Route: 047

REACTIONS (5)
  - Ocular hyperaemia [Recovering/Resolving]
  - Off label use [Unknown]
  - Eye swelling [Recovering/Resolving]
  - Blindness unilateral [Recovering/Resolving]
  - Suspected transmission of an infectious agent via product [Unknown]

NARRATIVE: CASE EVENT DATE: 20160113
